FAERS Safety Report 9482934 (Version 1)
Quarter: 2013Q3

REPORT INFORMATION
  Report Type: Spontaneous
  Country: US (occurrence: US)
  Receive Date: 20130828
  Receipt Date: 20130828
  Transmission Date: 20140515
  Serious: Yes (Death)
  Sender: FDA-Public Use
  Company Number: US-MUTUAL PHARMACEUTICAL COMPANY, INC.-MTCD20130173

PATIENT
  Age: 64 Year
  Sex: Male

DRUGS (6)
  1. METOCLOPRAMIDE [Suspect]
     Indication: DIABETIC GASTROPARESIS
     Route: 048
     Dates: start: 200402, end: 200809
  2. METOCLOPRAMIDE [Suspect]
     Dates: start: 200203, end: 200905
  3. REGLAN [Suspect]
     Indication: DIABETIC GASTROPARESIS
     Route: 048
     Dates: start: 200402, end: 200809
  4. REGLAN [Suspect]
     Dates: start: 200203, end: 200905
  5. REGLAN IV INJECTION [Suspect]
     Indication: DIABETIC GASTROPARESIS
     Route: 042
     Dates: start: 200203, end: 200905
  6. METOCLOPRAMIDE IV INJECTION [Suspect]
     Indication: DIABETIC GASTROPARESIS
     Route: 042
     Dates: start: 200203, end: 200905

REACTIONS (4)
  - Cardiac arrest [None]
  - Cardio-respiratory arrest [None]
  - Hypoxic-ischaemic encephalopathy [None]
  - Tardive dyskinesia [None]
